FAERS Safety Report 14543418 (Version 1)
Quarter: 2018Q1

REPORT INFORMATION
  Report Type: Report from Study
  Country: US (occurrence: US)
  Receive Date: 20180216
  Receipt Date: 20180216
  Transmission Date: 20180509
  Serious: Yes (Life-Threatening)
  Sender: FDA-Public Use
  Company Number: US-UCBSA-2017036733

PATIENT
  Age: 59 Year
  Sex: Female
  Weight: 128 kg

DRUGS (6)
  1. LACOSAMIDE. [Suspect]
     Active Substance: LACOSAMIDE
     Dosage: 100 ML, ONCE DAILY (QD)
     Dates: start: 201712
  2. KEPPRA [Concomitant]
     Active Substance: LEVETIRACETAM
     Indication: PRODUCT USED FOR UNKNOWN INDICATION
  3. AMITRIPTYLINE [Concomitant]
     Active Substance: AMITRIPTYLINE
     Indication: DEPRESSION
  4. LACOSAMIDE. [Suspect]
     Active Substance: LACOSAMIDE
     Indication: SEIZURE
     Dosage: UNK UNK, 2X/DAY (BID)
     Dates: end: 20171204
  5. OMEPRAZOLE. [Concomitant]
     Active Substance: OMEPRAZOLE
     Indication: PRODUCT USED FOR UNKNOWN INDICATION
  6. FUROSEMIDE. [Concomitant]
     Active Substance: FUROSEMIDE
     Indication: PERIPHERAL SWELLING

REACTIONS (4)
  - Fibromyalgia [Recovered/Resolved]
  - Chronic obstructive pulmonary disease [Recovered/Resolved]
  - Emphysema [Recovered/Resolved]
  - Drug dose omission [Unknown]

NARRATIVE: CASE EVENT DATE: 20171204
